FAERS Safety Report 19598044 (Version 1)
Quarter: 2021Q3

REPORT INFORMATION
  Report Type: Spontaneous
  Country: US (occurrence: US)
  Receive Date: 20210722
  Receipt Date: 20210722
  Transmission Date: 20211014
  Serious: Yes (Disabling)
  Sender: FDA-Public Use
  Company Number: None

PATIENT
  Age: 64 Year
  Sex: Female
  Weight: 58.5 kg

DRUGS (3)
  1. E2 TRANSDERMAL [Concomitant]
  2. ALIVE MULTIVITAMIN [Concomitant]
  3. YUVAFEM [Suspect]
     Active Substance: ESTRADIOL HEMIHYDRATE
     Indication: UROGENITAL DISORDER
     Dosage: ?          QUANTITY:1 SUPPOSITORY(IES);OTHER FREQUENCY:TWICE PER WEEK;?
     Route: 067

REACTIONS (2)
  - Anal incontinence [None]
  - Hypermobility syndrome [None]

NARRATIVE: CASE EVENT DATE: 20210601
